FAERS Safety Report 6234773-2 (Version None)
Quarter: 2009Q2

REPORT INFORMATION
  Report Type: 
  Country: None (occurrence: None)
  Receive Date: 20090605
  Receipt Date: 20090526
  Transmission Date: 20091009
  Serious: No
  Sender: FDA-Public Use
  Company Number: 2009020262

PATIENT
  Sex: Male
  Weight: 90.2658 kg

DRUGS (13)
  1. VIVAGLOBIN [Suspect]
     Indication: HYPOGAMMAGLOBULINAEMIA
     Dosage: 9.6 G, 9.6 G WEEKLY SUBCUTANEOUS
     Route: 058
     Dates: start: 20080219
  2. VIVAGLOBIN [Suspect]
     Indication: HYPOGAMMAGLOBULINAEMIA
     Dosage: 9.6 G, 9.6 G WEEKLY SUBCUTANEOUS
     Route: 058
     Dates: start: 20090521
  3. INTRANASAL IRRIGATION (OTHER NASAL PREPARATIONS) [Concomitant]
  4. NASONEX [Concomitant]
  5. ZEGERID (PRILOSEC) (OMEPRAZOLE) [Concomitant]
  6. AMBIEN [Concomitant]
  7. LIPITOR [Concomitant]
  8. LISINOPRIL [Concomitant]
  9. MTV (DAILY MULTIVITAMIN) [Concomitant]
  10. B COMPLEX (CYANOCOBALAMIN) [Concomitant]
  11. FOLIC ACID [Concomitant]
  12. VITAMIN B12 [Concomitant]
  13. VITAMIN D [Concomitant]

REACTIONS (1)
  - DEEP VEIN THROMBOSIS [None]
